FAERS Safety Report 15367589 (Version 2)
Quarter: 2018Q3

REPORT INFORMATION
  Report Type: Report from Study
  Country: RU (occurrence: RU)
  Receive Date: 20180910
  Receipt Date: 20180911
  Transmission Date: 20181010
  Serious: Yes (Other)
  Sender: FDA-Public Use
  Company Number: RU-ASTRAZENECA-2018SF15374

PATIENT
  Age: 67 Year
  Sex: Male
  Weight: 56 kg

DRUGS (6)
  1. TANAKAN [Concomitant]
     Active Substance: GINKGO
  2. MEMANTINE. [Concomitant]
     Active Substance: MEMANTINE
  3. FORXIGA [Suspect]
     Active Substance: DAPAGLIFLOZIN
     Indication: TYPE 2 DIABETES MELLITUS
     Route: 048
     Dates: start: 2017
  4. METFORMIN [Concomitant]
     Active Substance: METFORMIN HYDROCHLORIDE
  5. LIPRIMAR [Concomitant]
     Active Substance: ATORVASTATIN CALCIUM
  6. THROMBO ASS [Concomitant]
     Active Substance: ASPIRIN

REACTIONS (2)
  - Blood pressure increased [Unknown]
  - Cerebrovascular accident [Unknown]

NARRATIVE: CASE EVENT DATE: 20180630
